FAERS Safety Report 22122515 (Version 6)
Quarter: 2023Q2

REPORT INFORMATION
  Report Type: Report from Study
  Country: US (occurrence: US)
  Receive Date: 20230321
  Receipt Date: 20230626
  Transmission Date: 20230721
  Serious: Yes (Other)
  Sender: FDA-Public Use
  Company Number: US-ABBVIE-4280355

PATIENT
  Age: 68 Year
  Sex: Female
  Weight: 68.038 kg

DRUGS (8)
  1. HUMIRA [Suspect]
     Active Substance: ADALIMUMAB
     Indication: Vasculitis
     Dosage: CITRATE FREE?FORM STRENGTH: 40 MILLIGRAM
     Route: 058
     Dates: start: 20220802
  2. HUMIRA [Suspect]
     Active Substance: ADALIMUMAB
     Indication: Uveitis
     Dosage: CITRATE FREE?FORM STRENGTH: 40 MILLIGRAM
     Route: 058
  3. METHOTREXATE [Concomitant]
     Active Substance: METHOTREXATE
     Indication: Uveitis
  4. PROLIA [Concomitant]
     Active Substance: DENOSUMAB
     Indication: Osteoporosis
  5. FOLIC ACID [Concomitant]
     Active Substance: FOLIC ACID
     Indication: Vitamin supplementation
  6. CALCIUM CARBONATE\CHOLECALCIFEROL [Concomitant]
     Active Substance: CALCIUM CARBONATE\CHOLECALCIFEROL
     Indication: Mineral supplementation
  7. VITAMIN D3 [Concomitant]
     Active Substance: CHOLECALCIFEROL
     Indication: Vitamin supplementation
  8. ATORVASTATIN [Concomitant]
     Active Substance: ATORVASTATIN
     Indication: Blood cholesterol increased
     Dosage: FORM STRENGTH: 10 MILLIGRAM

REACTIONS (11)
  - Visual impairment [Recovering/Resolving]
  - Intraocular pressure increased [Recovering/Resolving]
  - Dry eye [Unknown]
  - COVID-19 [Not Recovered/Not Resolved]
  - Optic neuritis [Unknown]
  - Hypersomnia [Recovering/Resolving]
  - Drug hypersensitivity [Recovered/Resolved]
  - Osteoporosis [Unknown]
  - Abdominal discomfort [Unknown]
  - Injection site hypersensitivity [Recovered/Resolved]
  - Retinal oedema [Recovering/Resolving]

NARRATIVE: CASE EVENT DATE: 20220801
